FAERS Safety Report 17076961 (Version 2)
Quarter: 2019Q4

REPORT INFORMATION
  Report Type: Spontaneous
  Country: LV (occurrence: LV)
  Receive Date: 20191126
  Receipt Date: 20191202
  Transmission Date: 20200122
  Serious: Yes (Other)
  Sender: FDA-Public Use
  Company Number: LV-PFIZER INC-2019504915

PATIENT
  Age: 73 Year
  Sex: Female

DRUGS (17)
  1. PREDNISOLONE. [Suspect]
     Active Substance: PREDNISOLONE
     Indication: DRUG HYPERSENSITIVITY
     Dosage: 0.5 MG/KG, DAILY FOR 1 TO 2 WEEKS (UNTIL A MARKED IMPROVEMENT IS SEEN)
     Route: 048
     Dates: start: 2019
  2. SILDENAFIL. [Concomitant]
     Active Substance: SILDENAFIL
  3. SPIRONOLACTON [Concomitant]
     Active Substance: SPIRONOLACTONE
  4. PANTOPRAZOLE [Concomitant]
     Active Substance: PANTOPRAZOLE
  5. METHYLPREDNISOLONE SODIUM SUCCINATE. [Suspect]
     Active Substance: METHYLPREDNISOLONE SODIUM SUCCINATE
     Indication: DRUG HYPERSENSITIVITY
     Dosage: 250 MG, SINGLE
     Route: 042
  6. DIGOXIN. [Concomitant]
     Active Substance: DIGOXIN
  7. METHYLPREDNISOLONE. [Suspect]
     Active Substance: METHYLPREDNISOLONE
     Indication: VASCULITIS
  8. BISOPROLOL/PERINDOPRIL [Concomitant]
     Active Substance: BISOPROLOL\PERINDOPRIL
  9. ATORVASTATIN [Concomitant]
     Active Substance: ATORVASTATIN
  10. METFORMIN [Concomitant]
     Active Substance: METFORMIN HYDROCHLORIDE
  11. ALLOPURINE [Concomitant]
  12. METHYLPREDNISOLONE SODIUM SUCCINATE. [Suspect]
     Active Substance: METHYLPREDNISOLONE SODIUM SUCCINATE
     Indication: VASCULITIS
  13. PREDNISOLONE. [Suspect]
     Active Substance: PREDNISOLONE
     Indication: VASCULITIS
  14. THIAMAZOL [Concomitant]
     Active Substance: METHIMAZOLE
  15. METHYLPREDNISOLONE. [Suspect]
     Active Substance: METHYLPREDNISOLONE
     Indication: DRUG HYPERSENSITIVITY
     Dosage: 36 MG, 1X/DAY
     Route: 048
  16. WARFARIN [Concomitant]
     Active Substance: WARFARIN
  17. TORASEMID [Concomitant]
     Active Substance: TORSEMIDE

REACTIONS (2)
  - Myopathy [Recovering/Resolving]
  - Pancreatitis [Recovering/Resolving]

NARRATIVE: CASE EVENT DATE: 2019
